FAERS Safety Report 9662549 (Version 2)
Quarter: 2013Q4

REPORT INFORMATION
  Report Type: Spontaneous
  Country: US (occurrence: US)
  Receive Date: 20131031
  Receipt Date: 20131031
  Transmission Date: 20140711
  Serious: No
  Sender: FDA-Public Use
  Company Number: US-PURDUE-USA-2011-0067286

PATIENT
  Age: 61 Year
  Sex: Male
  Weight: 108.84 kg

DRUGS (2)
  1. OXYCONTIN (NDA 22-272) [Suspect]
     Indication: PAIN
     Dosage: 80 MG, QID
     Route: 048
     Dates: start: 201011
  2. OXYCODONE HYDROCHLORIDE (SIMILAR TO NDA 22-272) [Concomitant]
     Indication: PAIN
     Dosage: 30 MG, PRN
     Route: 048
     Dates: start: 201012

REACTIONS (6)
  - Medication residue present [Unknown]
  - Pain [Unknown]
  - Drug ineffective [Unknown]
  - Inadequate analgesia [Unknown]
  - Insomnia [Unknown]
  - Quality of life decreased [Unknown]
